FAERS Safety Report 13449152 (Version 1)
Quarter: 2017Q2

REPORT INFORMATION
  Report Type: Spontaneous
  Country: US (occurrence: US)
  Receive Date: 20170417
  Receipt Date: 20170417
  Transmission Date: 20170830
  Serious: No
  Sender: FDA-Public Use
  Company Number: US-MANNKIND CORPORATION-2017MK000035

PATIENT
  Age: 65 Year
  Sex: Female
  Weight: 61.29 kg

DRUGS (8)
  1. AFREZZA [Suspect]
     Active Substance: INSULIN HUMAN
     Indication: TYPE 2 DIABETES MELLITUS
     Dates: start: 20170316
  2. FENOFIBRATE. [Concomitant]
     Active Substance: FENOFIBRATE
     Indication: BLOOD CHOLESTEROL
     Route: 048
     Dates: start: 2007
  3. TOUJEO [Suspect]
     Active Substance: INSULIN GLARGINE
     Indication: TYPE 2 DIABETES MELLITUS
     Dates: start: 20170225
  4. SIMVASTATIN. [Concomitant]
     Active Substance: SIMVASTATIN
     Indication: BLOOD CHOLESTEROL
     Route: 048
     Dates: start: 2007
  5. TOUJEO [Suspect]
     Active Substance: INSULIN GLARGINE
     Dates: start: 2017
  6. TOUJEO [Suspect]
     Active Substance: INSULIN GLARGINE
  7. ADVOCARE OMEGA 3 [Concomitant]
     Indication: BLOOD CHOLESTEROL
     Route: 048
     Dates: start: 2007
  8. TOUJEO [Suspect]
     Active Substance: INSULIN GLARGINE
     Dates: start: 2017

REACTIONS (2)
  - Drug ineffective [Not Recovered/Not Resolved]
  - Blood glucose increased [Not Recovered/Not Resolved]

NARRATIVE: CASE EVENT DATE: 20170317
